FAERS Safety Report 4829362-8 (Version None)
Quarter: 2005Q4

REPORT INFORMATION
  Report Type: 
  Country: None (occurrence: None)
  Receive Date: 20051028
  Receipt Date: 20050825
  Transmission Date: 20060501
  Serious: No
  Sender: FDA-Public Use
  Company Number: COT_0198_2005

PATIENT
  Age: 28 Year
  Sex: Female
  Weight: 77.1115 kg

DRUGS (8)
  1. VENTAVIS [Suspect]
     Indication: PULMONARY HYPERTENSION
     Dosage: DF IH
     Route: 055
  2. VENTAVIS [Suspect]
     Indication: PULMONARY HYPERTENSION
     Dosage: 5 MCG IH
     Route: 055
     Dates: start: 20050623
  3. DIGOXIN [Concomitant]
  4. SITAXENTAN [Concomitant]
  5. FUROSEMIDE [Concomitant]
  6. WARFARIN [Concomitant]
  7. SPIRONOLACTONE [Concomitant]
  8. OMNICEF [Concomitant]

REACTIONS (2)
  - DIZZINESS [None]
  - NAUSEA [None]
